FAERS Safety Report 8136562-0 (Version None)
Quarter: 2012Q1

REPORT INFORMATION
  Report Type: 
  Country: None (occurrence: None)
  Receive Date: 20120214
  Receipt Date: 20120209
  Transmission Date: 20120608
  Serious: Yes (Other)
  Sender: FDA-Public Use
  Company Number: PHEH2012US002864

PATIENT
  Sex: Female
  Weight: 173 kg

DRUGS (15)
  1. GILENYA [Suspect]
     Indication: RELAPSING-REMITTING MULTIPLE SCLEROSIS
     Dosage: 15 MG, ONCE/SINGLE
     Route: 048
  2. CLONAZEPAM [Concomitant]
     Dosage: 2 MG, BID
  3. METOCLOPRAMIDE [Concomitant]
     Dosage: 50 MG, QD
  4. ZYPREXA [Concomitant]
     Dosage: 40 MG, QD
  5. ABILIFY [Concomitant]
     Dosage: 30 MG, QD
  6. GEMFIBROZIL [Concomitant]
     Dosage: 1200 MG, BID
  7. LISINOPRIL [Concomitant]
     Dosage: 40 MG, QD
  8. CLOZARIL [Concomitant]
     Dosage: 50 MG, QD
  9. RITUXIMAB [Concomitant]
     Dates: start: 20111201
  10. NEXIUM [Concomitant]
     Dosage: 80 MG, QD
  11. CYMBALTA [Concomitant]
     Dosage: 30 MG, QD
  12. BUPROPION HCL [Concomitant]
     Dosage: 200 MG, BID
  13. TRAZODONE HCL [Concomitant]
     Dosage: 200 MG, QD
  14. IBUPROFEN [Concomitant]
     Dosage: 800 MG, PRN
  15. AMLODIPINE [Concomitant]
     Dosage: 5 MG, QD

REACTIONS (3)
  - SUICIDE ATTEMPT [None]
  - INTENTIONAL OVERDOSE [None]
  - DIZZINESS [None]
